FAERS Safety Report 14250786 (Version 2)
Quarter: 2017Q4

REPORT INFORMATION
  Report Type: Spontaneous
  Country: US (occurrence: US)
  Receive Date: 20171205
  Receipt Date: 20171212
  Transmission Date: 20180321
  Serious: No
  Sender: FDA-Public Use
  Company Number: US-PFIZER INC-2017517408

PATIENT
  Age: 80 Year
  Sex: Female

DRUGS (1)
  1. EUCRISA [Suspect]
     Active Substance: CRISABOROLE
     Dosage: 2 %, UNK
     Dates: start: 20171017

REACTIONS (3)
  - Rash [Unknown]
  - Condition aggravated [Unknown]
  - Drug ineffective [Unknown]
